FAERS Safety Report 8958016 (Version 1)
Quarter: 2012Q4

REPORT INFORMATION
  Report Type: 
  Country: US (occurrence: US)
  Receive Date: 20121211
  Receipt Date: 20121211
  Transmission Date: 20130627
  Serious: No
  Sender: FDA-Public Use
  Company Number: US-BIOGENIDEC-2012BI058294

PATIENT
  Sex: Male

DRUGS (1)
  1. TYSABRI [Suspect]
     Indication: MULTIPLE SCLEROSIS
     Route: 042
     Dates: start: 20120307

REACTIONS (6)
  - Mobility decreased [Unknown]
  - Abasia [Unknown]
  - Aphasia [Unknown]
  - Nuclear magnetic resonance imaging abnormal [Unknown]
  - Activities of daily living impaired [Unknown]
  - Multiple sclerosis [Unknown]
